FAERS Safety Report 12211620 (Version 1)
Quarter: 2016Q1

REPORT INFORMATION
  Report Type: Spontaneous
  Country: GB (occurrence: GB)
  Receive Date: 20160325
  Receipt Date: 20160325
  Transmission Date: 20160526
  Serious: Yes (Disabling, Other)
  Sender: FDA-Public Use
  Company Number: GB-BAYER-2016-053877

PATIENT
  Age: 49 Year
  Sex: Female
  Weight: 84.36 kg

DRUGS (3)
  1. LEVOTHYROXIN [Concomitant]
     Active Substance: LEVOTHYROXINE
  2. MIRENA [Suspect]
     Active Substance: LEVONORGESTREL
     Indication: HORMONE REPLACEMENT THERAPY
     Dosage: 20 MCG/24HR, CONT
     Route: 067
     Dates: start: 20151005, end: 20160309
  3. OESTROGEL [Concomitant]
     Active Substance: ESTRADIOL

REACTIONS (9)
  - Acne [Unknown]
  - Depression [Unknown]
  - Nipple pain [Unknown]
  - Vaginal haemorrhage [Unknown]
  - Anger [Unknown]
  - Panic reaction [Unknown]
  - Anxiety [Unknown]
  - Breast pain [Unknown]
  - Tearfulness [Unknown]

NARRATIVE: CASE EVENT DATE: 20151015
